FAERS Safety Report 9643476 (Version 3)
Quarter: 2013Q4

REPORT INFORMATION
  Report Type: Spontaneous
  Country: US (occurrence: US)
  Receive Date: 20131024
  Receipt Date: 20131105
  Transmission Date: 20140711
  Serious: Yes (Life-Threatening, Hospitalization, Disabling, Other)
  Sender: FDA-Public Use
  Company Number: US-ACTELION-A-NJ2013-85975

PATIENT
  Age: 35 Year
  Sex: Male

DRUGS (3)
  1. TRACLEER [Suspect]
     Indication: PULMONARY ARTERIAL HYPERTENSION
     Dosage: UNK
     Route: 048
  2. SILDENAFIL [Concomitant]
  3. LANTUS [Concomitant]

REACTIONS (4)
  - Epistaxis [Recovering/Resolving]
  - Anaemia [Recovering/Resolving]
  - Transfusion [Recovering/Resolving]
  - Drug dose omission [Recovered/Resolved]
